FAERS Safety Report 7006274-5 (Version None)
Quarter: 2010Q3

REPORT INFORMATION
  Report Type: 
  Country: None (occurrence: None)
  Receive Date: 20100921
  Receipt Date: 20100913
  Transmission Date: 20110219
  Serious: Yes (Other)
  Sender: FDA-Public Use
  Company Number: SE-CEPHALON-2010004614

PATIENT
  Age: 81 Year
  Sex: Male

DRUGS (15)
  1. TREANDA [Suspect]
     Indication: MANTLE CELL LYMPHOMA
     Route: 042
     Dates: start: 20091110, end: 20100309
  2. LENALIDOMIDE [Suspect]
     Indication: MANTLE CELL LYMPHOMA
  3. RITUXIMAB [Suspect]
     Indication: MANTLE CELL LYMPHOMA
  4. CARBOMER [Concomitant]
  5. CLOPIDOGREL [Concomitant]
  6. CYANOKOBOLAMIN [Concomitant]
  7. FOLIC ACID [Concomitant]
  8. SULFAMETHOXAZOLE-TRIMETOPRIM [Concomitant]
  9. FLUCONAZOLE [Concomitant]
  10. MORPHINE [Concomitant]
  11. ACETAMINOPHEN [Concomitant]
  12. GABAPENTIN [Concomitant]
  13. MIRTAZAPIN [Concomitant]
  14. FENTANYL CITRATE [Concomitant]
  15. ZOPICLONE [Concomitant]

REACTIONS (1)
  - CHRONIC MYELOMONOCYTIC LEUKAEMIA [None]
